FAERS Safety Report 22007406 (Version 3)
Quarter: 2023Q2

REPORT INFORMATION
  Report Type: Report from Study
  Country: AU (occurrence: AU)
  Receive Date: 20230218
  Receipt Date: 20230419
  Transmission Date: 20230721
  Serious: Yes (Hospitalization, Other)
  Sender: FDA-Public Use
  Company Number: AU-ABBVIE-4311195

PATIENT
  Age: 76 Year
  Sex: Male

DRUGS (2)
  1. CARBIDOPA\LEVODOPA [Suspect]
     Active Substance: CARBIDOPA\LEVODOPA
     Indication: Parkinson^s disease
     Dosage: THE MORNING DOSE IS 6.2 MLS, CONTINUOUS DOSE IS 1.7 MLS/HR AND EXTRA DOSE IS 0.8 MLS?16 HOURS
     Route: 050
  2. CARBIDOPA\LEVODOPA [Suspect]
     Active Substance: CARBIDOPA\LEVODOPA
     Route: 050
     Dates: start: 20180212

REACTIONS (7)
  - Hernia [Recovered/Resolved]
  - Abdominal pain [Recovered/Resolved]
  - Intestinal obstruction [Recovered/Resolved]
  - Fluid intake reduced [Unknown]
  - Device dislocation [Recovered/Resolved with Sequelae]
  - General physical health deterioration [Unknown]
  - Hypophagia [Unknown]

NARRATIVE: CASE EVENT DATE: 20230215
